FAERS Safety Report 8617883-1 (Version None)
Quarter: 2012Q3

REPORT INFORMATION
  Report Type: 
  Country: None (occurrence: None)
  Receive Date: 20120824
  Receipt Date: 20120319
  Transmission Date: 20120928
  Serious: No
  Sender: FDA-Public Use
  Company Number: US-ASTRAZENECA-2012SE18740

PATIENT
  Age: 73 Year
  Sex: Male
  Weight: 65.8 kg

DRUGS (4)
  1. SYMBICORT [Suspect]
     Dosage: 160/4.5, UNKNOWN
     Route: 055
     Dates: start: 20120101
  2. VITAMIN B-12 [Concomitant]
     Indication: ANAEMIA
  3. LIPITOR [Concomitant]
     Indication: BLOOD CHOLESTEROL
  4. SYNTHROID [Concomitant]
     Indication: HYPOTHYROIDISM

REACTIONS (1)
  - PARAESTHESIA [None]
